FAERS Safety Report 18130015 (Version 3)
Quarter: 2020Q4

REPORT INFORMATION
  Report Type: Spontaneous
  Country: IT (occurrence: IT)
  Receive Date: 20200810
  Receipt Date: 20201204
  Transmission Date: 20210113
  Serious: Yes (Other)
  Sender: FDA-Public Use
  Company Number: IT-ACCORD-194569

PATIENT
  Age: 69 Year
  Sex: Male
  Weight: 70 kg

DRUGS (4)
  1. RIVAROXABAN [Interacting]
     Active Substance: RIVAROXABAN
     Indication: ATRIAL FIBRILLATION
     Route: 048
  2. ATENOLOL/ATENOLOL HYDROCHLORIDE [Concomitant]
     Active Substance: ATENOLOL HYDROCHLORIDE
     Indication: HYPERTENSION
     Route: 048
  3. LEVETIRACETAM. [Suspect]
     Active Substance: LEVETIRACETAM
     Indication: PARTIAL SEIZURES
     Route: 048
     Dates: start: 20171101, end: 20190303
  4. LACOSAMIDE. [Concomitant]
     Active Substance: LACOSAMIDE
     Dosage: DAILY DOSE

REACTIONS (5)
  - Facial paralysis [Recovered/Resolved]
  - Drug interaction [Unknown]
  - Transient ischaemic attack [Recovered/Resolved]
  - Dysarthria [Recovered/Resolved]
  - Drug level decreased [Recovered/Resolved]
